FAERS Safety Report 7496506-1 (Version None)
Quarter: 2011Q2

REPORT INFORMATION
  Report Type: 
  Country: None (occurrence: None)
  Receive Date: 20110523
  Receipt Date: 20110518
  Transmission Date: 20111010
  Serious: Yes (Hospitalization)
  Sender: FDA-Public Use
  Company Number: FR-ROCHE-778062

PATIENT
  Sex: Female

DRUGS (12)
  1. VASTAREL [Concomitant]
     Indication: TINNITUS
     Dates: start: 20101118, end: 20101218
  2. ACETAMINOPHEN W/ PROPOXYPHENE HCL [Concomitant]
     Indication: TINNITUS
     Dates: start: 20101118, end: 20101218
  3. PIPORTIL [Concomitant]
     Indication: VERTIGO
     Dates: start: 20101014, end: 20101215
  4. DIHYDROERGOTAMINE MESYLATE [Concomitant]
     Indication: TINNITUS
     Dates: start: 20101118, end: 20101218
  5. LOXAPINE HCL [Suspect]
     Route: 048
     Dates: start: 20101222, end: 20110128
  6. ZOLPIDEM [Suspect]
     Indication: INSOMNIA
     Route: 048
     Dates: end: 20110203
  7. TANGANIL [Concomitant]
     Indication: TINNITUS
     Dates: start: 20101118, end: 20101218
  8. TEGRETOL [Suspect]
     Indication: DEPRESSION
     Route: 048
     Dates: start: 20101222, end: 20110128
  9. TRANXENE [Suspect]
     Indication: ANXIETY
     Dosage: FORM: INFUSION. STRENGTH: 50MG/2.5ML
     Route: 048
     Dates: start: 20101222, end: 20110112
  10. TRANXENE [Suspect]
     Dosage: FORM: CAPSULE.STRENGTH: 10 MG
     Route: 048
     Dates: start: 20110112, end: 20110128
  11. CLONAZEPAM [Suspect]
     Indication: INSOMNIA
     Route: 048
     Dates: end: 20110203
  12. LUDIOMIL [Suspect]
     Indication: DEPRESSION
     Route: 048
     Dates: start: 20101222, end: 20110128

REACTIONS (5)
  - RASH GENERALISED [None]
  - EOSINOPHILIA [None]
  - OEDEMA PERIPHERAL [None]
  - PRURITUS [None]
  - FACE OEDEMA [None]
